FAERS Safety Report 6457423-9 (Version None)
Quarter: 2009Q4

REPORT INFORMATION
  Report Type: 
  Country: None (occurrence: None)
  Receive Date: 20091125
  Receipt Date: 20091117
  Transmission Date: 20100525
  Serious: Yes (Other)
  Sender: FDA-Public Use
  Company Number: US-NOVOPROD-290975

PATIENT
  Sex: Male

DRUGS (5)
  1. LEVEMIR [Suspect]
     Indication: TYPE 2 DIABETES MELLITUS
     Dosage: 20 IU, QD
     Route: 058
     Dates: start: 20090820
  2. LANTUS [Suspect]
     Indication: TYPE 2 DIABETES MELLITUS
     Dates: start: 20090101, end: 20090819
  3. JANUVIA [Concomitant]
     Indication: TYPE 2 DIABETES MELLITUS
  4. AMARYL [Concomitant]
     Indication: TYPE 2 DIABETES MELLITUS
     Route: 048
  5. CORTICOSTEROIDS [Concomitant]
     Indication: ARTHRALGIA

REACTIONS (3)
  - ATRIAL FIBRILLATION [None]
  - BLOOD GLUCOSE INCREASED [None]
  - HEART RATE INCREASED [None]
